FAERS Safety Report 5176703-0 (Version None)
Quarter: 2006Q4

REPORT INFORMATION
  Report Type: 
  Country: None (occurrence: None)
  Receive Date: 20061212
  Receipt Date: 20061212
  Transmission Date: 20070319
  Serious: No
  Sender: FDA-Public Use
  Company Number: None

PATIENT
  Age: 43 Year
  Sex: Male

DRUGS (1)
  1. MIGRIN-A CAPSULES [Suspect]
     Dosage: CAPSULES

REACTIONS (1)
  - MEDICATION ERROR [None]
